FAERS Safety Report 7374589-7 (Version None)
Quarter: 2011Q1

REPORT INFORMATION
  Report Type: 
  Country: None (occurrence: None)
  Receive Date: 20110325
  Receipt Date: 20100412
  Transmission Date: 20110831
  Serious: No
  Sender: FDA-Public Use
  Company Number: US-MYLANLABS-2010S1006348

PATIENT
  Age: 54 Year
  Sex: Male
  Weight: 113.4 kg

DRUGS (1)
  1. FENTANYL-100 [Suspect]
     Indication: ABDOMINAL PAIN
     Dosage: CHANGES PATCHES Q3D
     Route: 062
     Dates: start: 20080101

REACTIONS (3)
  - DRUG WITHDRAWAL SYNDROME [None]
  - ABDOMINAL PAIN [None]
  - DRUG EFFECT DECREASED [None]
